FAERS Safety Report 9229787 (Version 1)
Quarter: 2013Q2

REPORT INFORMATION
  Report Type: Spontaneous
  Country: US (occurrence: US)
  Receive Date: 20130415
  Receipt Date: 20130415
  Transmission Date: 20140414
  Serious: No
  Sender: FDA-Public Use
  Company Number: US-BIOGENIDEC-2013BI032571

PATIENT
  Sex: Male

DRUGS (3)
  1. TYSABRI [Suspect]
     Indication: MULTIPLE SCLEROSIS
     Route: 042
     Dates: start: 20130322
  2. 2 ANTISEIZURE MEDICATION (NOS) [Concomitant]
     Indication: CONVULSION
     Dates: start: 201303
  3. VESICARE [Concomitant]
     Indication: URINE OUTPUT DECREASED

REACTIONS (2)
  - Photophobia [Recovered/Resolved]
  - Asthenia [Not Recovered/Not Resolved]
